FAERS Safety Report 12339735 (Version 1)
Quarter: 2016Q2

REPORT INFORMATION
  Report Type: Spontaneous
  Country: CH (occurrence: CH)
  Receive Date: 20160506
  Receipt Date: 20160506
  Transmission Date: 20160815
  Serious: Yes (Death, Hospitalization)
  Sender: FDA-Public Use
  Company Number: CH-ROCHE-1752302

PATIENT
  Age: 42 Year
  Sex: Female

DRUGS (33)
  1. FENTANYL. [Concomitant]
     Active Substance: FENTANYL
     Route: 065
  2. AMPHO-MORONAL [Concomitant]
     Active Substance: AMPHOTERICIN B
     Route: 065
  3. TAVANIC [Suspect]
     Active Substance: LEVOFLOXACIN
     Indication: PRODUCT USED FOR UNKNOWN INDICATION
     Dosage: MOST RECENT DOSE WAS RECEIVED ON 20/JAN/2016
     Route: 065
     Dates: start: 20160108
  4. VANCOCIN [Concomitant]
     Active Substance: VANCOMYCIN HYDROCHLORIDE
     Route: 065
  5. MOTILIUM [Concomitant]
     Active Substance: DOMPERIDONE
     Route: 065
  6. ESOMEP (SWITZERLAND) [Concomitant]
     Active Substance: ESOMEPRAZOLE
     Route: 065
  7. MERONEM [Concomitant]
     Active Substance: MEROPENEM
     Route: 065
  8. DISOPRIVAN [Suspect]
     Active Substance: PROPOFOL
     Indication: PRODUCT USED FOR UNKNOWN INDICATION
     Route: 065
     Dates: start: 20160107, end: 20160117
  9. ULTIVA [Concomitant]
     Active Substance: REMIFENTANIL HYDROCHLORIDE
     Route: 065
  10. KONAKION [Concomitant]
     Active Substance: PHYTONADIONE
     Route: 065
  11. CELLCEPT [Concomitant]
     Active Substance: MYCOPHENOLATE MOFETIL\MYCOPHENOLATE MOFETIL HYDROCHLORIDE
     Route: 065
  12. GASTROGRAFIN [Concomitant]
     Active Substance: DIATRIZOATE MEGLUMINE\DIATRIZOATE SODIUM
     Route: 065
  13. SPORANOX [Suspect]
     Active Substance: ITRACONAZOLE
     Indication: PRODUCT USED FOR UNKNOWN INDICATION
     Dosage: MOST RECENT DOSE WAS RECEIVED ON 20/JAN/2016
     Route: 065
     Dates: start: 20160111
  14. SUFENTANIL [Concomitant]
     Active Substance: SUFENTANIL
     Route: 065
  15. DORMICUM [Concomitant]
     Active Substance: MIDAZOLAM\MIDAZOLAM HYDROCHLORIDE
     Route: 065
  16. NORADRENALIN [Concomitant]
     Active Substance: NOREPINEPHRINE\NOREPINEPHRINE BITARTRATE
     Route: 065
  17. BACTRIM [Suspect]
     Active Substance: SULFAMETHOXAZOLE\TRIMETHOPRIM
     Indication: PRODUCT USED FOR UNKNOWN INDICATION
     Dosage: MOST RECENT DOSE RECEIVED ON 12/JAN/2016
     Route: 065
     Dates: start: 20160107
  18. SOLU-MEDROL [Suspect]
     Active Substance: METHYLPREDNISOLONE SODIUM SUCCINATE
     Indication: PRODUCT USED FOR UNKNOWN INDICATION
     Dosage: MOST RECENT DOSE WAS RECIEVED ON 11/JAN/2016
     Route: 065
     Dates: start: 20160107
  19. NIMBEX [Suspect]
     Active Substance: CISATRACURIUM BESYLATE
     Indication: PRODUCT USED FOR UNKNOWN INDICATION
     Dosage: MOST RECENT DOSE WAS RECEIVED ON 20/JAN/2016
     Route: 065
     Dates: start: 20160117
  20. HEPARIN [Concomitant]
     Active Substance: HEPARIN SODIUM
     Route: 065
  21. TAZOBAC [Concomitant]
     Active Substance: PIPERACILLIN SODIUM\TAZOBACTAM SODIUM
     Route: 065
  22. ILOMEDIN [Concomitant]
     Active Substance: ILOPROST
     Route: 065
  23. EPREX [Concomitant]
     Active Substance: ERYTHROPOIETIN
     Route: 065
  24. SANDIMMUN [Suspect]
     Active Substance: CYCLOSPORINE
     Indication: PRODUCT USED FOR UNKNOWN INDICATION
     Route: 065
     Dates: start: 20160107, end: 20160120
  25. SIMULECT [Concomitant]
     Active Substance: BASILIXIMAB
     Route: 065
  26. ATROVENT [Concomitant]
     Active Substance: IPRATROPIUM BROMIDE
     Route: 065
  27. METOLAZON [Concomitant]
     Active Substance: METOLAZONE
     Route: 065
  28. LASIX [Concomitant]
     Active Substance: FUROSEMIDE
     Route: 065
  29. KETALAR [Concomitant]
     Active Substance: KETAMINE HYDROCHLORIDE
     Route: 065
  30. CYMEVENE [Suspect]
     Active Substance: GANCICLOVIR
     Indication: PRODUCT USED FOR UNKNOWN INDICATION
     Dosage: MOST RECENT DOSE WAS RECEIVED ON 11/JAN/2016
     Route: 065
     Dates: start: 20160107
  31. NOVALGIN (SWITZERLAND) [Concomitant]
     Active Substance: DIPYRONE
     Route: 065
  32. PERFALGAN [Concomitant]
     Active Substance: ACETAMINOPHEN
     Route: 065
  33. CANCIDAS [Concomitant]
     Active Substance: CASPOFUNGIN ACETATE
     Route: 065

REACTIONS (4)
  - Hypoxia [None]
  - Multiple organ dysfunction syndrome [None]
  - Anaemia [None]
  - Blood creatine phosphokinase increased [Not Recovered/Not Resolved]

NARRATIVE: CASE EVENT DATE: 20160107
